FAERS Safety Report 19280926 (Version 1)
Quarter: 2021Q2

REPORT INFORMATION
  Report Type: Spontaneous
  Country: NL (occurrence: NL)
  Receive Date: 20210521
  Receipt Date: 20210521
  Transmission Date: 20210717
  Serious: Yes (Other)
  Sender: FDA-Public Use
  Company Number: NL-SA-2021SA161431

PATIENT
  Sex: Male
  Weight: 70 kg

DRUGS (1)
  1. AFLIBERCEPT [Suspect]
     Active Substance: AFLIBERCEPT
     Indication: MACULAR OEDEMA
     Dosage: 1 DF
     Dates: start: 2021, end: 20210415

REACTIONS (2)
  - Blindness transient [Recovered/Resolved]
  - Intraocular pressure increased [Recovered/Resolved]
